FAERS Safety Report 10253923 (Version 1)
Quarter: 2014Q2

REPORT INFORMATION
  Report Type: Report from Study
  Country: JP (occurrence: JP)
  Receive Date: 20140623
  Receipt Date: 20140623
  Transmission Date: 20141212
  Serious: No
  Sender: FDA-Public Use
  Company Number: PHHY2013JP157156

PATIENT
  Age: 67 Year
  Sex: Female

DRUGS (5)
  1. TASIGNA [Suspect]
     Indication: CHRONIC MYELOID LEUKAEMIA
     Dosage: 600 MG, PER DAY
     Dates: start: 201010
  2. URSO [Concomitant]
     Dosage: UNK UKN, UNK
  3. LIPITOR [Concomitant]
     Dosage: UNK UKN, UNK
  4. AMLODIN [Concomitant]
     Dosage: UNK UKN, UNK
  5. LASIX [Concomitant]
     Dosage: UNK UKN, UNK

REACTIONS (3)
  - Oedema [Unknown]
  - Pruritus [Unknown]
  - Skin exfoliation [Unknown]
